FAERS Safety Report 23973464 (Version 1)
Quarter: 2024Q2

REPORT INFORMATION
  Report Type: Spontaneous
  Country: FR (occurrence: FR)
  Receive Date: 20240613
  Receipt Date: 20240613
  Transmission Date: 20240717
  Serious: Yes (Hospitalization)
  Sender: FDA-Public Use
  Company Number: None

PATIENT
  Age: 15 Year
  Sex: Female

DRUGS (1)
  1. AMOXICILLIN [Suspect]
     Active Substance: AMOXICILLIN
     Indication: Product used for unknown indication
     Route: 065
     Dates: start: 1971, end: 1971

REACTIONS (2)
  - Hypersensitivity [Recovered/Resolved]
  - Allergy test positive [Recovered/Resolved]

NARRATIVE: CASE EVENT DATE: 19710101
